FAERS Safety Report 12116076 (Version 4)
Quarter: 2017Q3

REPORT INFORMATION
  Report Type: Report from Study
  Country: US (occurrence: US)
  Receive Date: 20160225
  Receipt Date: 20170927
  Transmission Date: 20171127
  Serious: Yes (Other)
  Sender: FDA-Public Use
  Company Number: PHEH2015US027671

PATIENT
  Age: 40 Year
  Sex: Female

DRUGS (1)
  1. GILENYA [Suspect]
     Active Substance: FINGOLIMOD HYDROCHLORIDE
     Indication: RELAPSING-REMITTING MULTIPLE SCLEROSIS
     Dosage: UNK UNK, QD
     Route: 048
     Dates: start: 20150501, end: 20170626

REACTIONS (4)
  - Metastases to lung [Unknown]
  - Heart rate decreased [Recovered/Resolved]
  - General physical health deterioration [Unknown]
  - Renal cancer [Unknown]

NARRATIVE: CASE EVENT DATE: 20150501
